FAERS Safety Report 24534295 (Version 1)
Quarter: 2024Q4

REPORT INFORMATION
  Report Type: Spontaneous
  Country: DE (occurrence: DE)
  Receive Date: 20241022
  Receipt Date: 20241022
  Transmission Date: 20250115
  Serious: No
  Sender: JAZZ
  Company Number: DE-JAZZ PHARMACEUTICALS-2024-DE-003410

PATIENT
  Age: 12 Year
  Sex: Female

DRUGS (4)
  1. XYREM [Suspect]
     Active Substance: SODIUM OXYBATE
     Indication: Narcolepsy
     Dosage: 0-0-1.5-1.5 G
     Route: 048
  2. XYREM [Suspect]
     Active Substance: SODIUM OXYBATE
     Indication: Cataplexy
     Dosage: 2.5 GRAM, BID
  3. XYREM [Suspect]
     Active Substance: SODIUM OXYBATE
     Indication: Orexin deficiency
     Dosage: 3 GRAM, BID
  4. PITOLISANT [Concomitant]
     Active Substance: PITOLISANT
     Dosage: UNK
     Dates: start: 202405

REACTIONS (7)
  - Heavy menstrual bleeding [Unknown]
  - Sensory disturbance [Not Recovered/Not Resolved]
  - Product taste abnormal [Unknown]
  - Therapeutic product effect incomplete [Unknown]
  - Off label use [Unknown]
  - Drug interaction [Unknown]
  - Product use issue [Unknown]

NARRATIVE: CASE EVENT DATE: 20240201
